FAERS Safety Report 9347353 (Version 1)
Quarter: 2013Q2

REPORT INFORMATION
  Report Type: Spontaneous
  Country: GB (occurrence: GB)
  Receive Date: 20130613
  Receipt Date: 20130613
  Transmission Date: 20140414
  Serious: Yes (Other)
  Sender: FDA-Public Use
  Company Number: GB-US-EMD SERONO, INC.-7216048

PATIENT
  Age: 9 Year
  Sex: Male

DRUGS (1)
  1. SOMATROPIN [Suspect]
     Indication: PRODUCT USED FOR UNKNOWN INDICATION
     Dates: start: 201212, end: 201303

REACTIONS (2)
  - Scoliosis [Unknown]
  - Snoring [Recovered/Resolved]
